FAERS Safety Report 11014775 (Version 2)
Quarter: 2015Q2

REPORT INFORMATION
  Report Type: Spontaneous
  Country: US (occurrence: US)
  Receive Date: 20150412
  Receipt Date: 20150525
  Transmission Date: 20150821
  Serious: No
  Sender: FDA-Public Use
  Company Number: US-JNJFOC-20140515924

PATIENT
  Sex: Female
  Weight: 106.14 kg

DRUGS (7)
  1. MAXZIDE [Concomitant]
     Active Substance: HYDROCHLOROTHIAZIDE\TRIAMTERENE
     Indication: HYPERTENSION
     Route: 048
  2. TRAMADOL HYDROCHLORIDE. [Suspect]
     Active Substance: TRAMADOL HYDROCHLORIDE
     Indication: RHEUMATOID ARTHRITIS
     Dosage: 4 TIMES A DAY
     Route: 048
     Dates: end: 201403
  3. IBUPROFEN. [Concomitant]
     Active Substance: IBUPROFEN
     Indication: ARTHRITIS
     Route: 048
  4. PROMETHAZINE [Concomitant]
     Active Substance: PROMETHAZINE\PROMETHAZINE HYDROCHLORIDE
     Indication: NAUSEA
     Route: 048
  5. BENICAR [Concomitant]
     Active Substance: OLMESARTAN MEDOXOMIL
     Indication: HYPERTENSION
     Route: 048
  6. MEDROL [Concomitant]
     Active Substance: METHYLPREDNISOLONE
     Indication: ARTHRITIS
     Route: 048
  7. RANITIDINE [Concomitant]
     Active Substance: RANITIDINE\RANITIDINE HYDROCHLORIDE
     Indication: GASTRIC DISORDER
     Route: 048

REACTIONS (1)
  - Drug ineffective [Unknown]
